FAERS Safety Report 12084850 (Version 2)
Quarter: 2016Q1

REPORT INFORMATION
  Report Type: Spontaneous
  Country: US (occurrence: US)
  Receive Date: 20160217
  Receipt Date: 20160226
  Transmission Date: 20160526
  Serious: Yes (Other)
  Sender: FDA-Public Use
  Company Number: US-BAYER-2016-024516

PATIENT
  Age: 78 Year
  Sex: Female

DRUGS (3)
  1. EOVIST [Suspect]
     Active Substance: GADOXETATE DISODIUM
     Indication: NUCLEAR MAGNETIC RESONANCE IMAGING ABDOMINAL
     Dosage: UNK, ONCE
     Route: 042
     Dates: start: 2015
  2. TUMS [Suspect]
     Active Substance: CALCIUM CARBONATE
     Indication: DYSPEPSIA
     Dosage: UNK
     Dates: start: 2015
  3. EOVIST [Suspect]
     Active Substance: GADOXETATE DISODIUM
     Indication: PANCREATIC CYST

REACTIONS (6)
  - Contrast media reaction [Unknown]
  - Blood pressure increased [None]
  - Abdominal pain upper [None]
  - Dyspepsia [None]
  - Abdominal pain [None]
  - Off label use [None]

NARRATIVE: CASE EVENT DATE: 2015
